FAERS Safety Report 15353909 (Version 4)
Quarter: 2018Q4

REPORT INFORMATION
  Report Type: Report from Study
  Country: US (occurrence: US)
  Receive Date: 20180905
  Receipt Date: 20181220
  Transmission Date: 20190204
  Serious: No
  Sender: FDA-Public Use
  Company Number: PHEH2018US036129

PATIENT
  Age: 51 Year
  Sex: Female

DRUGS (2)
  1. COSENTYX [Suspect]
     Active Substance: SECUKINUMAB
     Indication: PSORIATIC ARTHROPATHY
     Dosage: 300 MG, QW
     Route: 058
     Dates: start: 20180809
  2. COSENTYX [Suspect]
     Active Substance: SECUKINUMAB
     Dosage: 300 MG, QMO
     Route: 058

REACTIONS (11)
  - Diarrhoea [Unknown]
  - Hepatic steatosis [Unknown]
  - Myalgia [Unknown]
  - Constipation [Unknown]
  - Drug effect incomplete [Unknown]
  - Decreased appetite [Unknown]
  - Arthralgia [Unknown]
  - Therapeutic response shortened [Unknown]
  - Headache [Unknown]
  - Weight decreased [Unknown]
  - Plantar fasciitis [Unknown]

NARRATIVE: CASE EVENT DATE: 20180810
